FAERS Safety Report 6870819-6 (Version None)
Quarter: 2010Q3

REPORT INFORMATION
  Report Type: 
  Country: None (occurrence: None)
  Receive Date: 20100723
  Receipt Date: 20100712
  Transmission Date: 20110219
  Serious: Yes (Hospitalization)
  Sender: FDA-Public Use
  Company Number: US-ELI_LILLY_AND_COMPANY-US201005004996

PATIENT
  Sex: Female

DRUGS (3)
  1. ZYPREXA [Suspect]
     Indication: SCHIZOPHRENIA, PARANOID TYPE
     Dosage: 15 MG, UNK
  2. PROZAC [Suspect]
     Indication: SCHIZOPHRENIA
  3. VITAMIN TAB [Concomitant]

REACTIONS (4)
  - AGITATION [None]
  - EPISTAXIS [None]
  - OFF LABEL USE [None]
  - SELF INJURIOUS BEHAVIOUR [None]
